FAERS Safety Report 5752092-5 (Version None)
Quarter: 2008Q2

REPORT INFORMATION
  Report Type: 
  Country: None (occurrence: None)
  Receive Date: 20080529
  Receipt Date: 20080519
  Transmission Date: 20081010
  Serious: Yes (Other)
  Sender: FDA-Public Use
  Company Number: SE-TEVA-171827ISR

PATIENT
  Sex: Female

DRUGS (9)
  1. METHOTREXATE SODIUM TABLETS, 2.5 MG [Suspect]
     Indication: RHEUMATOID ARTHRITIS
     Route: 048
     Dates: start: 20030101, end: 20080408
  2. ADALIMUMAB [Suspect]
     Indication: RHEUMATOID ARTHRITIS
     Route: 058
     Dates: start: 20030101, end: 20080408
  3. ALENDRONATE SODIUM [Concomitant]
     Route: 048
  4. OMEPRAZOLE [Concomitant]
  5. FOLACIN [Concomitant]
     Route: 048
  6. ACETAMINOPHEN [Concomitant]
     Route: 048
  7. DICLOFENAC [Concomitant]
  8. LEKOVIT CA [Concomitant]
     Dosage: 500MG/400 IE
     Route: 048
  9. TRAMADOL HCL [Concomitant]
     Route: 048

REACTIONS (2)
  - DEEP VEIN THROMBOSIS [None]
  - GENITAL NEOPLASM MALIGNANT FEMALE [None]
